FAERS Safety Report 16824664 (Version 4)
Quarter: 2019Q4

REPORT INFORMATION
  Report Type: Report from Study
  Country: US (occurrence: US)
  Receive Date: 20190918
  Receipt Date: 20191106
  Transmission Date: 20200122
  Serious: Yes (Hospitalization)
  Sender: FDA-Public Use
  Company Number: US-EXELIXIS-XL18419023748

PATIENT
  Age: 74 Year
  Sex: Female
  Weight: 79.4 kg

DRUGS (3)
  1. PROPANOLOL [Concomitant]
     Active Substance: PROPRANOLOL HYDROCHLORIDE
  2. DURVALUMAB. [Suspect]
     Active Substance: DURVALUMAB
     Indication: COLON CANCER
     Dosage: 1500 MG
     Route: 042
     Dates: start: 20190523
  3. XL184 [Suspect]
     Active Substance: CABOZANTINIB
     Indication: COLON CANCER
     Dosage: 40 MG, QD
     Route: 048
     Dates: start: 20190523

REACTIONS (2)
  - Thyroiditis [Recovering/Resolving]
  - Orthostatic hypotension [Recovering/Resolving]

NARRATIVE: CASE EVENT DATE: 20190912
